FAERS Safety Report 10607804 (Version 2)
Quarter: 2014Q4

REPORT INFORMATION
  Report Type: Spontaneous
  Country: PL (occurrence: PL)
  Receive Date: 20141125
  Receipt Date: 20141201
  Transmission Date: 20150529
  Serious: Yes (Other)
  Sender: FDA-Public Use
  Company Number: PL-GILEAD-2014-0124080

PATIENT
  Sex: Male

DRUGS (1)
  1. VIREAD [Suspect]
     Active Substance: TENOFOVIR DISOPROXIL FUMARATE
     Indication: HEPATITIS B
     Route: 065

REACTIONS (6)
  - Respiratory failure [Unknown]
  - Papilloedema [Unknown]
  - Hypothyroidism [Unknown]
  - Pneumonia [Unknown]
  - Diarrhoea [Unknown]
  - Renal transplant failure [Unknown]
